FAERS Safety Report 21493515 (Version 4)
Quarter: 2024Q3

REPORT INFORMATION
  Report Type: Spontaneous
  Country: US (occurrence: US)
  Receive Date: 20221021
  Receipt Date: 20240916
  Transmission Date: 20241017
  Serious: No
  Sender: PFIZER
  Company Number: US-PFIZER INC-2021882150

PATIENT
  Age: 53 Year
  Sex: Female
  Weight: 89.796 kg

DRUGS (1)
  1. XELJANZ XR [Suspect]
     Active Substance: TOFACITINIB CITRATE
     Dosage: 11 MG

REACTIONS (4)
  - Pain [Unknown]
  - Thinking abnormal [Unknown]
  - Depressed mood [Unknown]
  - Drug ineffective [Unknown]
